FAERS Safety Report 6988532-3 (Version None)
Quarter: 2010Q3

REPORT INFORMATION
  Report Type: 
  Country: None (occurrence: None)
  Receive Date: 20100916
  Receipt Date: 20100907
  Transmission Date: 20110219
  Serious: Yes (Other)
  Sender: FDA-Public Use
  Company Number: IN-PFIZER INC-2010113252

PATIENT
  Age: 72 Year
  Sex: Male
  Weight: 70 kg

DRUGS (3)
  1. ERAXIS [Suspect]
     Indication: CANDIDIASIS
     Dosage: 100 MG, 1X/DAY
     Route: 042
     Dates: start: 20100831, end: 20100907
  2. MEROPENEM [Concomitant]
     Dosage: UNK
     Route: 042
  3. TIGECYCLINE [Concomitant]
     Dosage: UNK
     Route: 042

REACTIONS (3)
  - ANURIA [None]
  - HYPOKALAEMIA [None]
  - THROMBOCYTOPENIA [None]
